FAERS Safety Report 9306202 (Version 1)
Quarter: 2013Q2

REPORT INFORMATION
  Report Type: Spontaneous
  Country: FR (occurrence: FR)
  Receive Date: 20130523
  Receipt Date: 20130523
  Transmission Date: 20140414
  Serious: Yes (Hospitalization)
  Sender: FDA-Public Use
  Company Number: FR-GLAXOSMITHKLINE-B0891316A

PATIENT
  Age: 88 Year
  Sex: Female

DRUGS (1)
  1. ZELITREX [Suspect]
     Indication: PRODUCT USED FOR UNKNOWN INDICATION
     Dosage: 3G PER DAY
     Route: 048
     Dates: start: 20130401, end: 20130404

REACTIONS (3)
  - Renal failure acute [Recovered/Resolved]
  - Confusional state [Recovered/Resolved]
  - Psychomotor retardation [Recovered/Resolved]
